FAERS Safety Report 23820478 (Version 1)
Quarter: 2024Q2

REPORT INFORMATION
  Report Type: Spontaneous
  Country: US (occurrence: US)
  Receive Date: 20240506
  Receipt Date: 20240506
  Transmission Date: 20240716
  Serious: Yes (Hospitalization)
  Sender: FDA-Public Use
  Company Number: US-TEVA-VS-3192533

PATIENT

DRUGS (1)
  1. VIGABATRIN [Suspect]
     Active Substance: VIGABATRIN
     Indication: Seizure
     Dosage: TAKE TWO AND ONE HALF TABLETS (1250 MG) BY MOUTH IN THE MORNING AND EVENING. TAKE TWO TABLETS (10...
     Route: 048

REACTIONS (2)
  - Seizure [Unknown]
  - Drug ineffective [Unknown]
